FAERS Safety Report 9432738 (Version 2)
Quarter: 2013Q3

REPORT INFORMATION
  Report Type: Spontaneous
  Country: US (occurrence: US)
  Receive Date: 20130731
  Receipt Date: 20130821
  Transmission Date: 20140515
  Serious: No
  Sender: FDA-Public Use
  Company Number: US-ROXANE LABORATORIES, INC.-2013-RO-01253RO

PATIENT
  Age: 70 Year
  Sex: Female
  Weight: 52 kg

DRUGS (2)
  1. EXEMESTANE [Suspect]
     Indication: BREAST CANCER
     Dosage: 25 MG
     Route: 048
     Dates: start: 20130703, end: 20130723
  2. PRILOSEC [Concomitant]
     Indication: HIATUS HERNIA
     Dosage: 20 MG
     Dates: start: 2003

REACTIONS (1)
  - Photosensitivity reaction [Recovered/Resolved]
